FAERS Safety Report 14014035 (Version 1)
Quarter: 2017Q3

REPORT INFORMATION
  Report Type: Spontaneous
  Country: US (occurrence: US)
  Receive Date: 20170926
  Receipt Date: 20170926
  Transmission Date: 20171128
  Serious: No
  Sender: FDA-Public Use
  Company Number: US-BIOGEN-2017BI00463985

PATIENT
  Sex: Female

DRUGS (1)
  1. TECFIDERA [Suspect]
     Active Substance: DIMETHYL FUMARATE
     Indication: MULTIPLE SCLEROSIS
     Route: 065
     Dates: start: 20170731

REACTIONS (13)
  - Urinary incontinence [Recovered/Resolved]
  - Peroneal nerve palsy [Not Recovered/Not Resolved]
  - Central nervous system lesion [Not Recovered/Not Resolved]
  - Urinary tract infection [Recovered/Resolved]
  - Urinary retention [Recovered/Resolved]
  - Urine odour abnormal [Recovered/Resolved]
  - Muscle atrophy [Not Recovered/Not Resolved]
  - Fungal skin infection [Recovered/Resolved]
  - Cystitis [Recovered/Resolved]
  - Anal incontinence [Recovered/Resolved]
  - Ingrowing nail [Recovered/Resolved]
  - Albumin urine present [Recovered/Resolved]
  - Foot operation [Recovered/Resolved]
